FAERS Safety Report 24885164 (Version 1)
Quarter: 2025Q1

REPORT INFORMATION
  Report Type: Spontaneous
  Country: US (occurrence: US)
  Receive Date: 20250124
  Receipt Date: 20250124
  Transmission Date: 20250409
  Serious: No
  Sender: MERCK
  Company Number: US-009507513-2501USA006884

PATIENT
  Sex: Female
  Weight: 81.6 kg

DRUGS (26)
  1. WINREVAIR [Suspect]
     Active Substance: SOTATERCEPT-CSRK
  2. TREPROSTINIL [Suspect]
     Active Substance: TREPROSTINIL
     Indication: Pulmonary arterial hypertension
     Dosage: 12 MG IN THE MORNING, 11 MG IN THE AFTERNOON AND 10 MG IN THE EVENING, TID
     Route: 048
     Dates: start: 20220602
  3. TREPROSTINIL [Suspect]
     Active Substance: TREPROSTINIL
     Route: 048
     Dates: start: 20220602
  4. TREPROSTINIL [Suspect]
     Active Substance: TREPROSTINIL
     Dosage: 10 MILLIGRAM
     Route: 048
     Dates: start: 20250104
  5. ORENITRAM [Suspect]
     Active Substance: TREPROSTINIL
     Indication: Pulmonary arterial hypertension
     Route: 048
  6. ORENITRAM [Suspect]
     Active Substance: TREPROSTINIL
     Route: 048
  7. FUROSEMIDE [Concomitant]
     Active Substance: FUROSEMIDE
  8. OZEMPIC [Concomitant]
     Active Substance: SEMAGLUTIDE
  9. TYLENOL EXTRA STRENGTH [Concomitant]
     Active Substance: ACETAMINOPHEN
  10. VOLTAREN ARTHRITIS PAIN [Concomitant]
     Active Substance: DICLOFENAC SODIUM
  11. ALLEGRA ALLERGY [Concomitant]
     Active Substance: FEXOFENADINE HYDROCHLORIDE
  12. EXCEDRIN MIGRAINE [Concomitant]
     Active Substance: ACETAMINOPHEN\ASPIRIN\CAFFEINE
  13. MOUNJARO [Concomitant]
     Active Substance: TIRZEPATIDE
  14. HI POTENCY MULTIVITAMIN WITH MINERALS [Concomitant]
  15. PANTOPRAZOLE SODIUM [Concomitant]
     Active Substance: PANTOPRAZOLE SODIUM
  16. ATORVASTATIN CALCIUM [Concomitant]
     Active Substance: ATORVASTATIN CALCIUM
  17. DIMETHYL SULFONE [Concomitant]
     Active Substance: DIMETHYL SULFONE
  18. OPSUMIT [Concomitant]
     Active Substance: MACITENTAN
  19. VITAMIN B12 [Concomitant]
     Active Substance: CYANOCOBALAMIN
  20. D 400 [Concomitant]
  21. ONDANSETRON HYDROCHLORIDE [Concomitant]
     Active Substance: ONDANSETRON HYDROCHLORIDE
  22. PROCHLORPERAZINE EDISYLATE [Concomitant]
     Active Substance: PROCHLORPERAZINE EDISYLATE
  23. VITAMIN D2 [Concomitant]
     Active Substance: ERGOCALCIFEROL
  24. UBRELVY [Concomitant]
     Active Substance: UBROGEPANT
  25. PROGESTERONE [Concomitant]
     Active Substance: PROGESTERONE
  26. MAGNESIUM [Concomitant]
     Active Substance: MAGNESIUM

REACTIONS (1)
  - Migraine [Unknown]
